FAERS Safety Report 6581475-9 (Version None)
Quarter: 2010Q1

REPORT INFORMATION
  Report Type: 
  Country: None (occurrence: None)
  Receive Date: 20100215
  Receipt Date: 20100205
  Transmission Date: 20100710
  Serious: Yes (Hospitalization)
  Sender: FDA-Public Use
  Company Number: B0524407A

PATIENT
  Sex: Female
  Weight: 67 kg

DRUGS (5)
  1. LAPATINIB [Suspect]
     Dosage: 1250MGD PER DAY
     Dates: start: 20080508, end: 20080529
  2. CAPECITABINE [Suspect]
     Dosage: 3500MGD PER DAY
     Route: 048
     Dates: start: 20080508, end: 20080529
  3. IRBESARTAN [Suspect]
     Indication: HYPERTENSION
     Dosage: 150MG PER DAY
     Route: 048
  4. TRASTUZUMAB [Concomitant]
  5. ANTHRACYCLINES (UNSPECIFIED) [Concomitant]

REACTIONS (3)
  - ATRIAL FIBRILLATION [None]
  - HYPOKALAEMIA [None]
  - PALPITATIONS [None]
